FAERS Safety Report 7489932-8 (Version None)
Quarter: 2011Q2

REPORT INFORMATION
  Report Type: 
  Country: None (occurrence: None)
  Receive Date: 20110519
  Receipt Date: 20110505
  Transmission Date: 20111010
  Serious: Yes (Other)
  Sender: FDA-Public Use
  Company Number: US-JNJFOC-20110503119

PATIENT
  Sex: Female
  Weight: 53.98 kg

DRUGS (11)
  1. ASACOL [Concomitant]
  2. CEFTIN [Concomitant]
  3. ATENOLOL [Concomitant]
  4. QUINAPRIL [Concomitant]
  5. REMICADE [Suspect]
     Indication: CROHN'S DISEASE
     Route: 042
     Dates: end: 20110101
  6. VITAMIN TAB [Concomitant]
  7. ASPIRIN [Concomitant]
  8. CLARITIN [Concomitant]
  9. CRESTOR [Concomitant]
  10. FLUTICASONE PROPIONATE [Concomitant]
  11. LEVOTHYROXINE SODIUM [Concomitant]

REACTIONS (1)
  - LUNG CARCINOMA CELL TYPE UNSPECIFIED STAGE IV [None]
